FAERS Safety Report 8683320 (Version 3)
Quarter: 2013Q1

REPORT INFORMATION
  Report Type: Spontaneous
  Country: US (occurrence: US)
  Receive Date: 20120726
  Receipt Date: 20130110
  Transmission Date: 20140127
  Serious: No
  Sender: FDA-Public Use
  Company Number: US-PFIZER INC-2012179419

PATIENT
  Age: 62 Year
  Sex: Male

DRUGS (12)
  1. INLYTA [Suspect]
     Indication: RENAL CANCER
     Dosage: 5 MG, 2X/DAY
     Route: 048
     Dates: start: 20120712
  2. ATORVASTATIN [Concomitant]
     Dosage: UNK
  3. AMLODIPINE/ATORVASTATIN [Concomitant]
     Dosage: UNK
  4. ATORVASTATIN CALCIUM [Concomitant]
     Dosage: UNK
  5. CLONIDINE HYDROCHLORIDE [Concomitant]
     Dosage: UNK
  6. FINASTERIDE [Concomitant]
     Dosage: UNK
  7. HYDROCHLOROTHIAZIDE [Concomitant]
     Dosage: UNK
  8. LANTUS SOLOSTAR [Concomitant]
     Dosage: UNK
  9. LEVOTHYROXINE SODIUM [Concomitant]
     Dosage: UNK
  10. METOPROLOL SUCCINATE [Concomitant]
     Dosage: UNK
  11. MORPHINE SULFATE ER [Concomitant]
     Dosage: UNK
  12. OMEPRAZOLE [Concomitant]
     Dosage: UNK

REACTIONS (2)
  - Nausea [Recovered/Resolved]
  - Weight decreased [Unknown]
